FAERS Safety Report 23720856 (Version 1)
Quarter: 2024Q2

REPORT INFORMATION
  Report Type: Spontaneous
  Country: US (occurrence: US)
  Receive Date: 20240409
  Receipt Date: 20240409
  Transmission Date: 20240715
  Serious: No
  Sender: FDA-Public Use
  Company Number: US-TEVA-VS-3173681

PATIENT
  Age: 27 Year
  Sex: Male

DRUGS (4)
  1. UZEDY [Suspect]
     Active Substance: RISPERIDONE
     Indication: Bipolar disorder
     Dosage: 250/0.7 MG/ML
     Route: 065
     Dates: start: 20240319
  2. CLOTIAZEPAM [Concomitant]
     Active Substance: CLOTIAZEPAM
     Route: 065
  3. BUSPAR [Concomitant]
     Active Substance: BUSPIRONE HYDROCHLORIDE
     Route: 065
  4. MOBIC [Concomitant]
     Active Substance: MELOXICAM
     Route: 065

REACTIONS (2)
  - Off label use [Not Recovered/Not Resolved]
  - Mania [Unknown]
